FAERS Safety Report 7581830-4 (Version None)
Quarter: 2011Q2

REPORT INFORMATION
  Report Type: 
  Country: None (occurrence: None)
  Receive Date: 20110629
  Receipt Date: 20110621
  Transmission Date: 20111010
  Serious: Yes (Other)
  Sender: FDA-Public Use
  Company Number: US-RB-018445-10

PATIENT
  Age: 45 Year
  Sex: Male

DRUGS (1)
  1. SUBOXONE [Suspect]
     Indication: PRODUCT USED FOR UNKNOWN INDICATION
     Dosage: DOSAGE INFORMATION UNKNOWN
     Route: 065

REACTIONS (9)
  - INSOMNIA [None]
  - MANIA [None]
  - SUICIDAL IDEATION [None]
  - DRUG WITHDRAWAL SYNDROME [None]
  - ANXIETY [None]
  - FORMICATION [None]
  - UNDERDOSE [None]
  - FEELING OF BODY TEMPERATURE CHANGE [None]
  - IRRITABILITY [None]
